FAERS Safety Report 7073996-X (Version None)
Quarter: 2010Q4

REPORT INFORMATION
  Report Type: 
  Country: None (occurrence: None)
  Receive Date: 20101029
  Receipt Date: 20101020
  Transmission Date: 20110411
  Serious: Yes (Hospitalization)
  Sender: FDA-Public Use
  Company Number: AU-ASTRAZENECA-2010SE49846

PATIENT
  Age: 38 Year
  Sex: Female

DRUGS (1)
  1. CRESTOR [Suspect]
     Route: 048
     Dates: start: 20100720, end: 20100821

REACTIONS (4)
  - BLOOD CREATINE [None]
  - BLOOD CREATINE PHOSPHOKINASE [None]
  - RENAL FAILURE ACUTE [None]
  - RHABDOMYOLYSIS [None]
